FAERS Safety Report 24669230 (Version 1)
Quarter: 2024Q4

REPORT INFORMATION
  Report Type: Spontaneous
  Country: MX (occurrence: MX)
  Receive Date: 20241127
  Receipt Date: 20241127
  Transmission Date: 20250114
  Serious: Yes (Other)
  Sender: ROCHE
  Company Number: MX-ROCHE-10000141431

PATIENT
  Age: 37 Year
  Sex: Female
  Weight: 64 kg

DRUGS (4)
  1. PERJETA [Suspect]
     Active Substance: PERTUZUMAB
     Indication: HER2 positive breast cancer
     Dosage: 840 MG LOADING DOSE
     Route: 042
     Dates: start: 20240530, end: 20241104
  2. DOCETAXEL [Concomitant]
     Active Substance: DOCETAXEL
     Indication: Breast cancer
     Dosage: FREQUENCY WAS NOT REPORTED
  3. CARBOPLATIN [Concomitant]
     Active Substance: CARBOPLATIN
     Indication: Breast cancer
     Dosage: FREQUENCY WAS NOT REPORTED
  4. TRAZIMERA [Concomitant]
     Active Substance: TRASTUZUMAB-QYYP
     Indication: Breast cancer
     Dosage: 672 MG LOADING DOSE, FOLLOWED BY 504 MG MAINTENANCE DOSE

REACTIONS (3)
  - Metastases to central nervous system [Not Recovered/Not Resolved]
  - Metastasis [Not Recovered/Not Resolved]
  - Metastases to bone [Not Recovered/Not Resolved]

NARRATIVE: CASE EVENT DATE: 20241112
